FAERS Safety Report 5609432-7 (Version None)
Quarter: 2008Q1

REPORT INFORMATION
  Report Type: 
  Country: None (occurrence: None)
  Receive Date: 20080131
  Receipt Date: 20080129
  Transmission Date: 20080703
  Serious: Yes (Hospitalization)
  Sender: FDA-Public Use
  Company Number: FR-SANOFI-SYNTHELABO-A02200800307

PATIENT
  Age: 76 Year
  Sex: Male

DRUGS (3)
  1. TADENAN [Concomitant]
     Route: 048
  2. ZOFENIL [Concomitant]
     Route: 048
  3. ALFUZOSIN WINTHROP [Suspect]
     Indication: DRUG USE FOR UNKNOWN INDICATION
     Route: 048
     Dates: start: 20080101, end: 20080101

REACTIONS (2)
  - HYPOTENSION [None]
  - HYPOTHERMIA [None]
